FAERS Safety Report 8492117-X (Version None)
Quarter: 2012Q3

REPORT INFORMATION
  Report Type: 
  Country: None (occurrence: None)
  Receive Date: 20120706
  Receipt Date: 20120704
  Transmission Date: 20120928
  Serious: Yes (Other)
  Sender: FDA-Public Use
  Company Number: CO-PFIZER INC-2012116853

PATIENT
  Age: 10 Year
  Sex: Female

DRUGS (2)
  1. ENSURE [Concomitant]
     Indication: MALNUTRITION
     Dosage: UNK
  2. GENOTROPIN [Suspect]
     Indication: SILVER-RUSSELL SYNDROME
     Dosage: UNK
     Dates: start: 20060101, end: 20110318

REACTIONS (2)
  - INTRACARDIAC THROMBUS [None]
  - SCOLIOSIS [None]
